FAERS Safety Report 4485164-6 (Version None)
Quarter: 2004Q4

REPORT INFORMATION
  Report Type: 
  Country: None (occurrence: None)
  Receive Date: 20041026
  Receipt Date: 20040123
  Transmission Date: 20050328
  Serious: No
  Sender: FDA-Public Use
  Company Number: US-BRISTOL-MYERS SQUIBB COMPANY-12486841

PATIENT
  Age: 53 Year
  Sex: Female
  Weight: 122 kg

DRUGS (1)
  1. GLUCOPHAGE XR [Suspect]
     Indication: DIABETES MELLITUS
     Route: 048
     Dates: start: 20040114

REACTIONS (2)
  - DIARRHOEA [None]
  - PRURITUS [None]
